FAERS Safety Report 16126256 (Version 1)
Quarter: 2019Q1

REPORT INFORMATION
  Report Type: Report from Study
  Country: US (occurrence: US)
  Receive Date: 20190328
  Receipt Date: 20190328
  Transmission Date: 20190418
  Serious: Yes (Death)
  Sender: FDA-Public Use
  Company Number: US-ROCHE-2290862

PATIENT
  Age: 75 Year
  Sex: Female

DRUGS (6)
  1. CIPROFLOXACIN. [Concomitant]
     Active Substance: CIPROFLOXACIN
     Route: 065
  2. METOPROLOL. [Concomitant]
     Active Substance: METOPROLOL
     Route: 065
  3. SIMVASTATIN. [Concomitant]
     Active Substance: SIMVASTATIN
     Route: 065
  4. LUCENTIS [Suspect]
     Active Substance: RANIBIZUMAB
     Indication: BRONCHIAL CARCINOMA
     Dosage: ONGOING: YES RIGHT EYE
     Route: 050
     Dates: start: 20160429
  5. LOSARTAN/HCTZ [Concomitant]
     Active Substance: HYDROCHLOROTHIAZIDE\LOSARTAN
     Route: 065
  6. ALENDRONATE [Concomitant]
     Active Substance: ALENDRONATE SODIUM
     Route: 065

REACTIONS (1)
  - Death [Fatal]

NARRATIVE: CASE EVENT DATE: 20190310
